FAERS Safety Report 9268256 (Version 3)
Quarter: 2014Q2

REPORT INFORMATION
  Report Type: Spontaneous
  Country: US (occurrence: US)
  Receive Date: 20130502
  Receipt Date: 20140422
  Transmission Date: 20141212
  Serious: Yes (Hospitalization)
  Sender: FDA-Public Use
  Company Number: US-B.I. PHARMACEUTICALS,INC./RIDGEFIELD-2013-BI-11992BP

PATIENT
  Age: 76 Year
  Sex: Male
  Weight: 113.4 kg

DRUGS (10)
  1. PRADAXA [Suspect]
     Indication: ANTICOAGULANT THERAPY
     Dosage: 300 MG
     Route: 065
     Dates: start: 20110417, end: 20111203
  2. PRADAXA [Suspect]
     Indication: ATRIAL FIBRILLATION
  3. COREG [Concomitant]
     Route: 065
     Dates: start: 2011
  4. PREVACID [Concomitant]
     Route: 065
     Dates: start: 1998
  5. BENAZEPRIL [Concomitant]
     Dosage: 20 MG
     Route: 048
  6. EYE VIT [Concomitant]
     Route: 065
  7. LOTREL [Concomitant]
     Route: 065
  8. ZOCOR [Concomitant]
     Route: 065
  9. AVAPRO [Concomitant]
     Route: 065
  10. ASPIRIN [Concomitant]
     Route: 065

REACTIONS (4)
  - Gastrointestinal haemorrhage [Unknown]
  - Anaemia [Unknown]
  - Gingival bleeding [Unknown]
  - Epistaxis [Unknown]
